FAERS Safety Report 15901710 (Version 1)
Quarter: 2019Q1

REPORT INFORMATION
  Report Type: Spontaneous
  Country: US (occurrence: US)
  Receive Date: 20190201
  Receipt Date: 20190201
  Transmission Date: 20190417
  Serious: No
  Sender: FDA-Public Use
  Company Number: None

PATIENT
  Age: 57 Year
  Sex: Female
  Weight: 64.8 kg

DRUGS (6)
  1. NORTRIPYLENE [Concomitant]
  2. AJOVY [Suspect]
     Active Substance: FREMANEZUMAB-VFRM
     Indication: MIGRAINE PROPHYLAXIS
     Dosage: ?          QUANTITY:1 INJECTION(S);OTHER FREQUENCY:ONCE PER MONTH;?
     Route: 058
     Dates: start: 20181127, end: 20190131
  3. SIMVASTATIN. [Concomitant]
     Active Substance: SIMVASTATIN
  4. FISH OIL [Concomitant]
     Active Substance: FISH OIL
  5. B2 [Concomitant]
  6. GABAPENTIN. [Concomitant]
     Active Substance: GABAPENTIN

REACTIONS (6)
  - Abdominal discomfort [None]
  - Nasopharyngitis [None]
  - Injection related reaction [None]
  - Needle issue [None]
  - Rhinorrhoea [None]
  - Sneezing [None]

NARRATIVE: CASE EVENT DATE: 20181127
